FAERS Safety Report 8542510-1 (Version None)
Quarter: 2012Q3

REPORT INFORMATION
  Report Type: 
  Country: None (occurrence: None)
  Receive Date: 20120726
  Receipt Date: 20110802
  Transmission Date: 20120928
  Serious: Yes (Other)
  Sender: FDA-Public Use
  Company Number: US-ASTRAZENECA-2011SE46328

PATIENT
  Age: 75 Year
  Sex: Female

DRUGS (3)
  1. TEGRETOL [Suspect]
     Route: 065
  2. SEROQUEL [Suspect]
     Indication: BIPOLAR DISORDER
     Route: 048
     Dates: start: 20110108, end: 20110701
  3. SEROQUEL [Suspect]
     Route: 048

REACTIONS (5)
  - NAUSEA [None]
  - DEPRESSION [None]
  - DRUG DOSE OMISSION [None]
  - SUICIDAL IDEATION [None]
  - VOMITING [None]
